FAERS Safety Report 4628135-9 (Version None)
Quarter: 2005Q2

REPORT INFORMATION
  Report Type: 
  Country: None (occurrence: None)
  Receive Date: 20050406
  Receipt Date: 20050404
  Transmission Date: 20051028
  Serious: Yes (Hospitalization)
  Sender: FDA-Public Use
  Company Number: DE-GLAXOSMITHKLINE-D0046293A

PATIENT
  Sex: Male
  Weight: 100 kg

DRUGS (1)
  1. LEUKERAN [Suspect]
     Dosage: 26MG TWICE PER DAY
     Route: 048

REACTIONS (2)
  - BRAIN DAMAGE [None]
  - DEMENTIA [None]
